FAERS Safety Report 6240487-5 (Version None)
Quarter: 2009Q2

REPORT INFORMATION
  Report Type: 
  Country: None (occurrence: None)
  Receive Date: 20090623
  Receipt Date: 20090406
  Transmission Date: 20091009
  Serious: No
  Sender: FDA-Public Use
  Company Number: US-ASTRAZENECA-2009UW07308

PATIENT
  Sex: Male

DRUGS (4)
  1. PULMICORT FLEXHALER [Suspect]
     Dosage: 180 UG, 2 PUFFS, BID
     Route: 055
     Dates: start: 20090101
  2. DIOVAN HCT [Concomitant]
  3. PREDNISONE TAB [Concomitant]
  4. ALBUTEROL [Concomitant]

REACTIONS (1)
  - PULMONARY FUNCTION TEST DECREASED [None]
